FAERS Safety Report 6765058-3 (Version None)
Quarter: 2010Q2

REPORT INFORMATION
  Report Type: 
  Country: None (occurrence: None)
  Receive Date: 20100609
  Receipt Date: 20100609
  Transmission Date: 20101027
  Serious: Yes (Hospitalization)
  Sender: FDA-Public Use
  Company Number: None

PATIENT
  Age: 59 Year
  Sex: 0
  Weight: 76.6 kg

DRUGS (1)
  1. LITHIUM [Suspect]
     Indication: SCHIZOAFFECTIVE DISORDER
     Dosage: 300 MG BID PO
     Route: 048
     Dates: start: 20100424, end: 20100527

REACTIONS (12)
  - ACUTE PRERENAL FAILURE [None]
  - ANTIPSYCHOTIC DRUG LEVEL INCREASED [None]
  - BLOOD CREATININE INCREASED [None]
  - BLOOD UREA INCREASED [None]
  - CONFUSIONAL STATE [None]
  - DRUG HYPERSENSITIVITY [None]
  - GAIT DISTURBANCE [None]
  - MENTAL STATUS CHANGES [None]
  - MUSCULOSKELETAL DISORDER [None]
  - THERAPEUTIC AGENT TOXICITY [None]
  - TREMOR [None]
  - URINARY TRACT INFECTION [None]
